FAERS Safety Report 18853971 (Version 2)
Quarter: 2021Q1

REPORT INFORMATION
  Report Type: Spontaneous
  Country: US (occurrence: US)
  Receive Date: 20210205
  Receipt Date: 20210208
  Transmission Date: 20210420
  Serious: No
  Sender: FDA-Public Use
  Company Number: US-PFIZER INC-2021081153

PATIENT
  Sex: Male

DRUGS (1)
  1. NARDIL [Suspect]
     Active Substance: PHENELZINE SULFATE
     Indication: MAJOR DEPRESSION
     Dosage: 15 MG, [15MG UNCOATED TABLET TAKEN 5 TIMES DAILY]

REACTIONS (2)
  - Headache [Unknown]
  - Feeling abnormal [Unknown]
